FAERS Safety Report 25146154 (Version 2)
Quarter: 2025Q2

REPORT INFORMATION
  Report Type: Spontaneous
  Country: US (occurrence: US)
  Receive Date: 20250401
  Receipt Date: 20250401
  Transmission Date: 20250716
  Serious: No
  Sender: TEVA
  Company Number: US-TEVA-VS-3309154

PATIENT
  Age: 69 Year

DRUGS (1)
  1. AUSTEDO [Suspect]
     Active Substance: DEUTETRABENAZINE
     Indication: Dyskinesia
     Dosage: 9MG AND 6MG TABLETS, TAKING 1 TABLET OF EACH STRENGTH TWICE DAILY
     Route: 065

REACTIONS (7)
  - Injury [Unknown]
  - Emotional distress [Unknown]
  - Insomnia [Unknown]
  - Tremor [Unknown]
  - Fall [Unknown]
  - Product use issue [Unknown]
  - Eating disorder [Unknown]
